FAERS Safety Report 18432473 (Version 1)
Quarter: 2020Q4

REPORT INFORMATION
  Report Type: Report from Study
  Country: None (occurrence: US)
  Receive Date: 20201027
  Receipt Date: 20201027
  Transmission Date: 20210114
  Serious: Yes (Other)
  Sender: FDA-Public Use
  Company Number: US-ABBVIE-20K-163-3432078-00

PATIENT
  Age: 45 Year
  Sex: Female

DRUGS (2)
  1. HUMIRA [Suspect]
     Active Substance: ADALIMUMAB
     Indication: PSORIATIC ARTHROPATHY
     Route: 058
     Dates: start: 20200618
  2. OTEZLA [Concomitant]
     Active Substance: APREMILAST
     Indication: PRODUCT USED FOR UNKNOWN INDICATION

REACTIONS (14)
  - Foot deformity [Unknown]
  - Headache [Recovered/Resolved]
  - Sinusitis [Unknown]
  - Peripheral swelling [Recovering/Resolving]
  - Exposure to SARS-CoV-2 [Unknown]
  - Initial insomnia [Unknown]
  - Synovial cyst [Not Recovered/Not Resolved]
  - Trigger finger [Recovered/Resolved]
  - Therapeutic response shortened [Unknown]
  - Skin plaque [Recovered/Resolved]
  - Joint swelling [Not Recovered/Not Resolved]
  - Musculoskeletal stiffness [Recovering/Resolving]
  - Musculoskeletal stiffness [Not Recovered/Not Resolved]
  - Pain in extremity [Not Recovered/Not Resolved]

NARRATIVE: CASE EVENT DATE: 2020
